FAERS Safety Report 15730738 (Version 1)
Quarter: 2018Q4

REPORT INFORMATION
  Report Type: Spontaneous
  Country: GB (occurrence: GB)
  Receive Date: 20181217
  Receipt Date: 20181217
  Transmission Date: 20190205
  Serious: Yes (Other)
  Sender: FDA-Public Use
  Company Number: GB-TEVA-160886ISR

PATIENT
  Age: 30 Year
  Sex: Female

DRUGS (1)
  1. CIPROFLOXACIN. [Suspect]
     Active Substance: CIPROFLOXACIN
     Indication: ABDOMINAL DISCOMFORT
     Route: 048
     Dates: start: 20070626, end: 20070704

REACTIONS (11)
  - Anxiety [Unknown]
  - Insomnia [Unknown]
  - Insomnia [Recovered/Resolved]
  - Neuropathy peripheral [Unknown]
  - Hypoaesthesia [Unknown]
  - Diarrhoea [Unknown]
  - Thinking abnormal [Unknown]
  - Haematochezia [Recovered/Resolved]
  - Paraesthesia [Unknown]
  - Pyrexia [Unknown]
  - Paranoia [Recovered/Resolved]

NARRATIVE: CASE EVENT DATE: 20070630
